FAERS Safety Report 4989024-3 (Version None)
Quarter: 2006Q2

REPORT INFORMATION
  Report Type: 
  Country: None (occurrence: None)
  Receive Date: 20060425
  Receipt Date: 20060417
  Transmission Date: 20061013
  Serious: Yes (Other)
  Sender: FDA-Public Use
  Company Number: S06-USA-00894-01

PATIENT
  Age: 9 Year
  Sex: Male

DRUGS (8)
  1. NAMENDA [Suspect]
     Indication: AUTISM SPECTRUM DISORDER
     Dosage: 10 MG BID PO
     Route: 048
     Dates: start: 20060309, end: 20060329
  2. NAMENDA [Suspect]
     Indication: AUTISM SPECTRUM DISORDER
     Dosage: 10 MG QD PO
     Route: 048
     Dates: start: 20051101, end: 20060308
  3. CONCERTA [Suspect]
     Indication: AUTISM SPECTRUM DISORDER
     Dates: start: 20060309
  4. ADVAIR DISKUS 100/50 [Concomitant]
  5. SINGULAIR [Concomitant]
  6. DEPAKOTE [Concomitant]
  7. ZONEGRAN [Concomitant]
  8. ABILIFY [Concomitant]

REACTIONS (12)
  - ABDOMINAL PAIN UPPER [None]
  - AGITATION [None]
  - CRYING [None]
  - DISTURBANCE IN ATTENTION [None]
  - DRUG INEFFECTIVE [None]
  - DYSKINESIA [None]
  - HEART RATE INCREASED [None]
  - HYPERHIDROSIS [None]
  - HYPERVENTILATION [None]
  - RESTLESSNESS [None]
  - TIC [None]
  - TONGUE DISORDER [None]
